FAERS Safety Report 7298577-4 (Version None)
Quarter: 2011Q1

REPORT INFORMATION
  Report Type: 
  Country: None (occurrence: None)
  Receive Date: 20110217
  Receipt Date: 20110214
  Transmission Date: 20110831
  Serious: Yes (Other)
  Sender: FDA-Public Use
  Company Number: ES-PFIZER INC-2011033232

PATIENT
  Age: 64 Year
  Sex: Female

DRUGS (7)
  1. CHAMPIX [Suspect]
     Indication: SMOKING CESSATION THERAPY
     Dosage: 0.5 MG, 1X/DAY
     Route: 048
     Dates: start: 20101115, end: 20101117
  2. EUTIROX [Concomitant]
     Indication: HYPOTHYROIDISM
     Dosage: 75 MG, UNK
     Dates: start: 20060101
  3. CALCIUM [Concomitant]
     Dosage: UNK MG, MONTHLY
     Dates: start: 20080101
  4. CRESTOR [Concomitant]
     Indication: BLOOD CHOLESTEROL INCREASED
     Dosage: 10 MG, UNK
     Dates: start: 20090101
  5. CHAMPIX [Suspect]
     Dosage: 0.5 MG, 2X/DAY
     Route: 048
     Dates: start: 20101118, end: 20101121
  6. BONIVA [Concomitant]
     Dosage: 150 MG, MONTHLY
     Dates: start: 20080101
  7. CHAMPIX [Suspect]
     Dosage: 1 MG, 2X/DAY
     Route: 048
     Dates: start: 20101122, end: 20110131

REACTIONS (3)
  - AGEUSIA [None]
  - ANOSMIA [None]
  - FALL [None]
